FAERS Safety Report 12947710 (Version 1)
Quarter: 2016Q4

REPORT INFORMATION
  Report Type: Spontaneous
  Country: US (occurrence: US)
  Receive Date: 20161117
  Receipt Date: 20161117
  Transmission Date: 20170207
  Serious: Yes (Hospitalization, Other)
  Sender: FDA-Public Use
  Company Number: US-B.I. PHARMACEUTICALS,INC./RIDGEFIELD-2016-BI-075388

PATIENT
  Sex: Female

DRUGS (1)
  1. SPIRIVA [Suspect]
     Active Substance: TIOTROPIUM BROMIDE MONOHYDRATE
     Indication: CHRONIC OBSTRUCTIVE PULMONARY DISEASE
     Route: 055
     Dates: end: 201605

REACTIONS (7)
  - Eating disorder [Recovered/Resolved]
  - Amnesia [Recovered/Resolved]
  - Pneumonia [Recovered/Resolved]
  - Dysgeusia [Not Recovered/Not Resolved]
  - Lung neoplasm malignant [Recovered/Resolved]
  - Dry mouth [Not Recovered/Not Resolved]
  - Laryngeal cancer [Recovered/Resolved]

NARRATIVE: CASE EVENT DATE: 2008
